FAERS Safety Report 17279589 (Version 1)
Quarter: 2020Q1

REPORT INFORMATION
  Report Type: Spontaneous
  Country: GB (occurrence: GB)
  Receive Date: 20200116
  Receipt Date: 20200116
  Transmission Date: 20200409
  Serious: Yes (Hospitalization)
  Sender: FDA-Public Use
  Company Number: GB-ELI_LILLY_AND_COMPANY-GB202001003667

PATIENT
  Age: 65 Year
  Sex: Female

DRUGS (4)
  1. ALENDRONIC ACID [Concomitant]
     Active Substance: ALENDRONIC ACID
     Indication: OSTEOPOROSIS
     Route: 048
     Dates: start: 20170915
  2. PREDNISOLONE. [Concomitant]
     Active Substance: PREDNISOLONE
     Indication: RHEUMATOID ARTHRITIS
     Route: 048
     Dates: start: 20160105
  3. BARICITINIB [Suspect]
     Active Substance: BARICITINIB
     Indication: RHEUMATOID ARTHRITIS
     Route: 048
  4. COCODAMOL [Concomitant]
     Active Substance: ACETAMINOPHEN\CODEINE PHOSPHATE
     Indication: RHEUMATOID ARTHRITIS
     Dosage: 15/500MG. 1-2 EVERY 4-6 HOURS
     Route: 065
     Dates: start: 20160105

REACTIONS (5)
  - Hemianopia homonymous [Recovering/Resolving]
  - Cerebral haematoma [Recovering/Resolving]
  - Seizure [Unknown]
  - Pyrexia [Unknown]
  - Hypertension [Unknown]

NARRATIVE: CASE EVENT DATE: 20191202
